FAERS Safety Report 17115647 (Version 7)
Quarter: 2021Q2

REPORT INFORMATION
  Report Type: Spontaneous
  Country: US (occurrence: US)
  Receive Date: 20191205
  Receipt Date: 20210622
  Transmission Date: 20210716
  Serious: Yes (Hospitalization, Other)
  Sender: FDA-Public Use
  Company Number: US-PFIZER INC-2019526619

PATIENT
  Age: 67 Year
  Sex: Female
  Weight: 98.87 kg

DRUGS (5)
  1. IBRANCE [Suspect]
     Active Substance: PALBOCICLIB
     Indication: BREAST CANCER METASTATIC
     Dosage: 125 MG, UNK
     Dates: start: 201803
  2. LETROZOLE. [Concomitant]
     Active Substance: LETROZOLE
     Dosage: 2.5 MG, UNK
  3. METOPROLOL. [Concomitant]
     Active Substance: METOPROLOL
     Dosage: 100 MG, UNK (100 MG (X2))
     Dates: start: 201710
  4. AMLODIPINE [Concomitant]
     Active Substance: AMLODIPINE BESYLATE
     Dosage: 10 MG, UNK
     Dates: start: 201710
  5. OMEPRAZOLE. [Concomitant]
     Active Substance: OMEPRAZOLE
     Dosage: 40 MG, UNK
     Dates: start: 201811

REACTIONS (11)
  - Renal impairment [Unknown]
  - Tumour marker increased [Unknown]
  - Hypersensitivity [Unknown]
  - Urinary tract infection [Unknown]
  - Eating disorder [Unknown]
  - Gastrointestinal arteriovenous malformation [Unknown]
  - Blood count abnormal [Not Recovered/Not Resolved]
  - Sinus headache [Unknown]
  - Mobility decreased [Unknown]
  - Bone marrow disorder [Unknown]
  - Gastric haemorrhage [Unknown]

NARRATIVE: CASE EVENT DATE: 201811
